FAERS Safety Report 25616167 (Version 1)
Quarter: 2025Q3

REPORT INFORMATION
  Report Type: Other
  Country: US (occurrence: US)
  Receive Date: 20250729
  Receipt Date: 20250729
  Transmission Date: 20251020
  Serious: Yes (Other)
  Sender: INNOGENIX, LLC
  Company Number: US-Innogenix, LLC-2181407

PATIENT
  Age: 84 Year
  Sex: Female

DRUGS (3)
  1. HALOPERIDOL [Suspect]
     Active Substance: HALOPERIDOL
     Indication: Schizophrenia
  2. RISPERIDONE [Suspect]
     Active Substance: RISPERIDONE
  3. OLANZAPINE [Suspect]
     Active Substance: OLANZAPINE

REACTIONS (3)
  - Hypothermia [Recovering/Resolving]
  - Leukopenia [Recovering/Resolving]
  - Thrombocytopenia [Recovering/Resolving]
